FAERS Safety Report 4720757-X (Version None)
Quarter: 2005Q3

REPORT INFORMATION
  Report Type: 
  Country: None (occurrence: None)
  Receive Date: 20050719
  Receipt Date: 20050630
  Transmission Date: 20060218
  Serious: Yes (Hospitalization)
  Sender: FDA-Public Use
  Company Number: US_0408105021

PATIENT
  Age: 35 Year
  Sex: Male
  Weight: 109 kg

DRUGS (33)
  1. ZYPREXA [Suspect]
     Indication: HALLUCINATION, AUDITORY
     Dosage: 50 MG AT BEDTIME
     Dates: start: 19971111, end: 20010301
  2. WELLBUTRIN [Concomitant]
  3. TOFRANIL [Concomitant]
  4. REMERON (MIRTAZAPINE ORIFARM) [Concomitant]
  5. SERZONE [Concomitant]
  6. PAXIL [Concomitant]
  7. ZOLOFT [Concomitant]
  8. EFFEXOR [Concomitant]
  9. TENORMIN [Concomitant]
  10. METOPROLOL [Concomitant]
  11. KLONOPIN [Concomitant]
  12. NADOLOL [Concomitant]
  13. SEROQUEL [Concomitant]
  14. RISPERDAL [Concomitant]
  15. GEODON [Concomitant]
  16. ESKALITH [Concomitant]
  17. AMBIEN [Concomitant]
  18. TRAZADONE (TRAZODONE) [Concomitant]
  19. BUSPAR [Concomitant]
  20. AMILORIDE HCL AND HYDROCHLOROTHIAZIDE [Concomitant]
  21. ANAFRANIL [Concomitant]
  22. NAVANE [Concomitant]
  23. LIPITOR [Concomitant]
  24. CYTOMEL [Concomitant]
  25. ATIVAN [Concomitant]
  26. BUSPAR [Concomitant]
  27. LITHIUM [Concomitant]
  28. NEURONTIN [Concomitant]
  29. HALDOL (HALOPERIDOL DECANOATE) [Concomitant]
  30. SIMVASTATIN [Concomitant]
  31. GLUCOPHAGE [Concomitant]
  32. METAMUCIL-2 [Concomitant]
  33. GLUCAGON HYDROCHLORIDE [Concomitant]

REACTIONS (24)
  - BACK PAIN [None]
  - BLOOD CHOLESTEROL ABNORMAL [None]
  - CHEST PAIN [None]
  - DIABETES MELLITUS NON-INSULIN-DEPENDENT [None]
  - DIABETIC KETOACIDOSIS [None]
  - HANGOVER [None]
  - HYPERTENSION [None]
  - HYPOKALAEMIA [None]
  - INCREASED APPETITE [None]
  - INFLUENZA [None]
  - INTENTIONAL MISUSE [None]
  - LETHARGY [None]
  - MENTAL IMPAIRMENT [None]
  - METABOLIC SYNDROME [None]
  - MULTIPLE DRUG OVERDOSE [None]
  - NAUSEA [None]
  - OBESITY [None]
  - PANCREATITIS [None]
  - PHIMOSIS [None]
  - SEDATION [None]
  - SUICIDAL IDEATION [None]
  - SUICIDE ATTEMPT [None]
  - TREATMENT NONCOMPLIANCE [None]
  - WEIGHT INCREASED [None]
